FAERS Safety Report 12181876 (Version 1)
Quarter: 2016Q1

REPORT INFORMATION
  Report Type: Report from Study
  Country: CA (occurrence: CA)
  Receive Date: 20160315
  Receipt Date: 20160315
  Transmission Date: 20160526
  Serious: Yes (Hospitalization, Disabling, Other)
  Sender: FDA-Public Use
  Company Number: CA-ASTRAZENECA-2015SE43636

PATIENT
  Age: 61 Year
  Sex: Female

DRUGS (1)
  1. FASLODEX [Suspect]
     Active Substance: FULVESTRANT
     Indication: BREAST CANCER
     Dosage: UNKNOWN
     Route: 030
     Dates: start: 20150211

REACTIONS (6)
  - Night sweats [Unknown]
  - Incision site haemorrhage [Unknown]
  - Device breakage [Recovering/Resolving]
  - Incision site erythema [Unknown]
  - Nasopharyngitis [Recovering/Resolving]
  - Osteomyelitis [Unknown]

NARRATIVE: CASE EVENT DATE: 2015
